FAERS Safety Report 8872796 (Version 1)
Quarter: 2012Q4

REPORT INFORMATION
  Report Type: 
  Country: US (occurrence: US)
  Receive Date: 20121027
  Receipt Date: 20121027
  Transmission Date: 20130627
  Serious: No
  Sender: FDA-Public Use
  Company Number: US-B.I. PHARMACEUTICALS,INC./RIDGEFIELD-2012-BP-26311BP

PATIENT
  Age: 71 Year
  Sex: Male

DRUGS (3)
  1. DIPYRIDAMOLE [Suspect]
  2. PLAVIX [Suspect]
  3. ASPIRIN [Suspect]

REACTIONS (1)
  - Gastric haemorrhage [Unknown]
